FAERS Safety Report 11868383 (Version 2)
Quarter: 2016Q1

REPORT INFORMATION
  Report Type: Spontaneous
  Country: IT (occurrence: IT)
  Receive Date: 20151224
  Receipt Date: 20160112
  Transmission Date: 20160526
  Serious: Yes (Hospitalization)
  Sender: FDA-Public Use
  Company Number: IT-ROCHE-1683384

PATIENT
  Age: 90 Year
  Sex: Female

DRUGS (6)
  1. ROCEFIN [Suspect]
     Active Substance: CEFTRIAXONE SODIUM
     Indication: ANTIBIOTIC THERAPY
     Dosage: 2 G POWDER FOR SOLUTION FOR INFUSION^ 1 VIAL
     Route: 042
     Dates: start: 20151120, end: 20151120
  2. NORMIX [Concomitant]
     Active Substance: RIFAXIMIN
     Dosage: 200 MG FILM-COATED TABLETS^ 12 TABLETS
     Route: 048
  3. LEXOTAN [Concomitant]
     Active Substance: BROMAZEPAM
     Dosage: 2.5 MG/ML - 20 ML BOTTLE WITH DROPPER
     Route: 048
  4. ANTRA [Concomitant]
     Active Substance: OMEPRAZOLE
     Dosage: 20 MG -14 CAPSULES IN AL BLISTER PACK
     Route: 048
  5. MEDROL [Concomitant]
     Active Substance: METHYLPREDNISOLONE
     Dosage: 16 MG TABLETS^ 20 TABLETS
     Route: 048
  6. LANOXIN [Concomitant]
     Active Substance: DIGOXIN

REACTIONS (2)
  - Drug hypersensitivity [Unknown]
  - Presyncope [Unknown]

NARRATIVE: CASE EVENT DATE: 20151120
